FAERS Safety Report 11949447 (Version 1)
Quarter: 2016Q1

REPORT INFORMATION
  Report Type: Spontaneous
  Country: ES (occurrence: ES)
  Receive Date: 20160125
  Receipt Date: 20160125
  Transmission Date: 20160526
  Serious: Yes (Hospitalization)
  Sender: FDA-Public Use
  Company Number: ES-BAYER-2016-009733

PATIENT
  Age: 76 Year
  Sex: Male

DRUGS (12)
  1. DIGOXIN. [Concomitant]
     Active Substance: DIGOXIN
     Dosage: 0.25 MG AT BREAKFAST EXCEPT FOR THURSDAY AND SUNDAYS
  2. ALDACTONE [Concomitant]
     Active Substance: SPIRONOLACTONE
     Dosage: 1 DF, QD
  3. SINTROM [Interacting]
     Active Substance: ACENOCOUMAROL
     Indication: ATRIAL FIBRILLATION
     Route: 048
     Dates: start: 201411, end: 20151016
  4. PANTOPRAZOLE [Concomitant]
     Active Substance: PANTOPRAZOLE SODIUM
     Dosage: 40 MG, QD
  5. DOXAZOSIN [Concomitant]
     Active Substance: DOXAZOSIN\DOXAZOSIN MESYLATE
     Dosage: 4 MG, QD
  6. MICAFUNGIN [Concomitant]
     Active Substance: MICAFUNGIN
     Indication: STERNITIS
     Route: 042
  7. LEVOTHYROXINE. [Concomitant]
     Active Substance: LEVOTHYROXINE
     Dosage: 500 ?G, QD
  8. VORICONAZOLE. [Concomitant]
     Active Substance: VORICONAZOLE
     Dosage: UNK
     Dates: start: 20151016
  9. SEGURIL [Concomitant]
     Active Substance: FUROSEMIDE
     Dosage: 1 DF, BID
  10. AMIKACIN [Concomitant]
     Active Substance: AMIKACIN
     Indication: STERNITIS
     Route: 042
  11. ADIRO 100 [Suspect]
     Active Substance: ASPIRIN
     Indication: VALVULOPLASTY CARDIAC
     Dosage: 100 MG, QD
     Route: 048
     Dates: start: 201411, end: 20151018
  12. ACOVIL [Concomitant]
     Active Substance: PHENIRAMINE
     Dosage: 2.5 MG, QD

REACTIONS (2)
  - Haematuria [Recovered/Resolved]
  - Hypocoagulable state [Recovered/Resolved]

NARRATIVE: CASE EVENT DATE: 20151014
